FAERS Safety Report 7327407-7 (Version None)
Quarter: 2011Q1

REPORT INFORMATION
  Report Type: 
  Country: None (occurrence: None)
  Receive Date: 20110303
  Receipt Date: 20110216
  Transmission Date: 20110831
  Serious: Yes (Other)
  Sender: FDA-Public Use
  Company Number: US-BAYER-2011-015971

PATIENT
  Sex: Female

DRUGS (3)
  1. ZYRTEC [Concomitant]
  2. PREDNISONE TAB [Concomitant]
     Dosage: UNK UNK, ONCE
  3. AVELOX [Suspect]
     Indication: SKIN INFECTION
     Route: 048

REACTIONS (6)
  - URTICARIA [None]
  - OEDEMA PERIPHERAL [None]
  - THROAT IRRITATION [None]
  - ANGIOEDEMA [None]
  - PRURITUS ALLERGIC [None]
  - SKIN WARM [None]
